FAERS Safety Report 8300716-0 (Version None)
Quarter: 2012Q2

REPORT INFORMATION
  Report Type: 
  Country: None (occurrence: None)
  Receive Date: 20120417
  Receipt Date: 20120410
  Transmission Date: 20120825
  Serious: Yes (Hospitalization, Other)
  Sender: FDA-Public Use
  Company Number: 2012SP007731

PATIENT
  Sex: Female
  Weight: 53.0709 kg

DRUGS (4)
  1. PEGASYS [Suspect]
     Indication: HEPATITIS C
     Dates: start: 20100806, end: 20101007
  2. PEGASYS [Suspect]
     Indication: HEPATITIS C
     Dates: start: 20100205, end: 20100212
  3. RIBAVIRIN [Suspect]
     Indication: HEPATITIS C
     Dates: start: 20100806, end: 20101007
  4. RIBAVIRIN [Suspect]
     Indication: HEPATITIS C
     Dates: start: 20100205, end: 20100212

REACTIONS (12)
  - CONFUSIONAL STATE [None]
  - RED BLOOD CELL COUNT DECREASED [None]
  - FAECAL VOMITING [None]
  - CHOLELITHIASIS [None]
  - HEPATIC CIRRHOSIS [None]
  - MALAISE [None]
  - WEIGHT DECREASED [None]
  - MEMORY IMPAIRMENT [None]
  - FEELING ABNORMAL [None]
  - WHITE BLOOD CELL COUNT DECREASED [None]
  - ABDOMINAL DISTENSION [None]
  - INTESTINAL OBSTRUCTION [None]
